FAERS Safety Report 6171493-7 (Version None)
Quarter: 2009Q2

REPORT INFORMATION
  Report Type: 
  Country: None (occurrence: None)
  Receive Date: 20090424
  Receipt Date: 20080515
  Transmission Date: 20091009
  Serious: Yes (Hospitalization)
  Sender: FDA-Public Use
  Company Number: WAES 0805USA03631

PATIENT
  Age: 16 Year
  Sex: Male

DRUGS (6)
  1. SINGULAIR [Suspect]
     Indication: ASTHMA
     Dosage: 5 MG/DAILY/PO; 10 MG/DAILY/PO
     Route: 048
     Dates: end: 20080101
  2. SINGULAIR [Suspect]
     Indication: ASTHMA
     Dosage: 5 MG/DAILY/PO; 10 MG/DAILY/PO
     Route: 048
     Dates: start: 20080101
  3. ADVAIR HFA [Concomitant]
  4. LOTENSIN [Concomitant]
  5. ALBUTEROL [Concomitant]
  6. FOLIC ACID [Concomitant]

REACTIONS (2)
  - HEADACHE [None]
  - UNDERDOSE [None]
